FAERS Safety Report 9925870 (Version 3)
Quarter: 2014Q1

REPORT INFORMATION
  Report Type: Report from Study
  Country: CA (occurrence: CA)
  Receive Date: 20140226
  Receipt Date: 20140319
  Transmission Date: 20141002
  Serious: Yes (Hospitalization)
  Sender: FDA-Public Use
  Company Number: CA-ABBVIE-14P-028-1204218-00

PATIENT
  Age: 76 Year
  Sex: Male

DRUGS (8)
  1. LUPRON DEPOT [Suspect]
     Indication: PROSTATE CANCER
     Route: 030
     Dates: start: 20110829
  2. ADALAT [Suspect]
     Indication: PRODUCT USED FOR UNKNOWN INDICATION
     Dates: start: 20060101, end: 20131024
  3. CRESTOR [Suspect]
     Indication: PRODUCT USED FOR UNKNOWN INDICATION
     Dates: start: 20060101, end: 20131024
  4. GLYBURIDE [Suspect]
     Indication: PRODUCT USED FOR UNKNOWN INDICATION
     Dates: start: 20060101, end: 20131024
  5. METFORMIN [Concomitant]
     Indication: DIABETES MELLITUS
     Route: 048
     Dates: start: 200601
  6. ONGLYZA [Concomitant]
     Indication: DIABETES MELLITUS
     Route: 048
     Dates: start: 200601
  7. COVERSYL [Concomitant]
     Indication: HYPERTENSION
     Dates: start: 200601
  8. METOPROLOL [Concomitant]
     Indication: HYPERTENSION
     Route: 048
     Dates: start: 200601

REACTIONS (4)
  - Disorientation [Recovered/Resolved]
  - Asthenia [Unknown]
  - Hypoglycaemia [Unknown]
  - Hypotension [Unknown]
